FAERS Safety Report 25230397 (Version 1)
Quarter: 2025Q2

REPORT INFORMATION
  Report Type: Spontaneous
  Country: US (occurrence: US)
  Receive Date: 20250423
  Receipt Date: 20250423
  Transmission Date: 20250716
  Serious: No
  Sender: LUNDBECK
  Company Number: US-LUNDBECK-DKLU4013511

PATIENT
  Age: 60 Year
  Sex: Female
  Weight: 63.503 kg

DRUGS (1)
  1. VYEPTI [Suspect]
     Active Substance: EPTINEZUMAB-JJMR
     Indication: Product used for unknown indication
     Dosage: 300 MILLIGRAM
     Route: 041
     Dates: start: 20250107

REACTIONS (1)
  - Migraine [Recovered/Resolved]
